FAERS Safety Report 8765242 (Version 12)
Quarter: 2013Q4

REPORT INFORMATION
  Report Type: Spontaneous
  Country: US (occurrence: US)
  Receive Date: 20120903
  Receipt Date: 20131205
  Transmission Date: 20140711
  Serious: Yes (Hospitalization)
  Sender: FDA-Public Use
  Company Number: US-PFIZER INC-2012213947

PATIENT
  Age: 67 Year
  Sex: Male

DRUGS (19)
  1. INLYTA [Suspect]
     Indication: RENAL CANCER
     Dosage: 5 MG, 2X/DAY
     Route: 048
     Dates: start: 20120809
  2. TRAZODONE [Concomitant]
     Dosage: UNK
  3. PREDNISONE [Concomitant]
     Dosage: UNK
  4. PROTONIX [Concomitant]
     Dosage: UNK
  5. CLARITIN [Concomitant]
     Dosage: UNK
  6. VALIUM [Concomitant]
     Dosage: UNK
  7. DEXAMETHASONE [Concomitant]
     Dosage: UNK
  8. ZOFRAN [Concomitant]
     Dosage: UNK
  9. AMBIEN CR [Concomitant]
     Dosage: UNK
  10. LORAZEPAM [Concomitant]
     Dosage: UNK
  11. CLONAZEPAM [Concomitant]
     Dosage: UNK
  12. LIDOCAINE VISCOUS [Concomitant]
     Dosage: UNK
  13. LOPRESSOR [Concomitant]
     Dosage: UNK
  14. OXYCODONE HYDROCHLORIDE [Concomitant]
     Dosage: UNK
  15. ATIVAN [Concomitant]
     Dosage: UNK
  16. BIOTIN [Concomitant]
     Dosage: UNK
  17. ALLEGRA ALLERGY [Concomitant]
     Dosage: UNK
  18. IMODIUM A-D [Concomitant]
     Dosage: UNK
  19. GREEN COFFEE BEAN [Concomitant]
     Dosage: UNK

REACTIONS (13)
  - Pneumonia [Unknown]
  - Cerebrovascular accident [Unknown]
  - Dry mouth [Not Recovered/Not Resolved]
  - Insomnia [Not Recovered/Not Resolved]
  - Headache [Unknown]
  - Glossodynia [Unknown]
  - Dysphonia [Unknown]
  - Hair texture abnormal [Unknown]
  - Hypertension [Unknown]
  - Haemoptysis [Unknown]
  - Pain [Unknown]
  - Diarrhoea [Unknown]
  - Myalgia [Unknown]
